FAERS Safety Report 9665136 (Version 1)
Quarter: 2013Q4

REPORT INFORMATION
  Report Type: Spontaneous
  Country: CA (occurrence: CA)
  Receive Date: 20131103
  Receipt Date: 20131103
  Transmission Date: 20140711
  Serious: Yes (Hospitalization)
  Sender: FDA-Public Use
  Company Number: CA-MYLANLABS-2013S1023781

PATIENT
  Age: 19 Year
  Sex: Male

DRUGS (3)
  1. ERYTHROMYCIN [Suspect]
     Indication: PROPHYLAXIS
     Dosage: 800MG 2H BEFORE TOOTH EXTRACTION FOLLOWED BY 400MG 6H LATER
     Route: 048
  2. ERYTHROMYCIN [Interacting]
     Indication: PROPHYLAXIS
     Dosage: 400MG 6H AFTER INITIAL DOSE
     Route: 048
  3. CAFFEINE\CODEINE [Interacting]
     Dosage: 15MG CAFFEINE/CODEINE 30MG/PARACETAMOL 300MG, 1 OR 2 TABLETS EVERY 4-6 HOURS
     Route: 065

REACTIONS (3)
  - Mania [Recovered/Resolved]
  - Psychotic disorder [Recovered/Resolved]
  - Drug interaction [Recovered/Resolved]
